FAERS Safety Report 4449444-2 (Version None)
Quarter: 2004Q3

REPORT INFORMATION
  Report Type: 
  Country: None (occurrence: None)
  Receive Date: 20040914
  Receipt Date: 20040827
  Transmission Date: 20050211
  Serious: Yes (Death, Hospitalization)
  Sender: FDA-Public Use
  Company Number: 04P-144-0271852-00

PATIENT
  Age: 43 Year
  Sex: Male

DRUGS (3)
  1. KALETRA [Suspect]
     Indication: HIV INFECTION
     Dosage: 3 CAPSULE, 2 IN 1 D, PER ORAL
     Route: 048
     Dates: start: 20040512, end: 20040803
  2. ZIDOVUDINE [Concomitant]
  3. LAMIVUDINE [Concomitant]

REACTIONS (7)
  - ASCITES [None]
  - BACTERAEMIA [None]
  - CELLULITIS [None]
  - HEPATIC CIRRHOSIS [None]
  - HEPATITIS C [None]
  - PYREXIA [None]
  - SEPTIC SHOCK [None]
